FAERS Safety Report 5845149-1 (Version None)
Quarter: 2008Q3

REPORT INFORMATION
  Report Type: 
  Country: None (occurrence: None)
  Receive Date: 20080814
  Receipt Date: 20080801
  Transmission Date: 20090109
  Serious: Yes (Other)
  Sender: FDA-Public Use
  Company Number: PHHY2008GB17527

PATIENT
  Age: 59 Year
  Sex: Female

DRUGS (15)
  1. VOLTAROL OPHTHA (NVO) [Suspect]
     Route: 047
  2. VOLTAREN [Suspect]
     Dosage: UNK
     Route: 047
     Dates: start: 20080429, end: 20080429
  3. DICLOFENAC FREE ACID [Suspect]
  4. ADRENALINE [Suspect]
     Indication: CATARACT OPERATION
     Dosage: UNK
     Dates: start: 20080429, end: 20080429
  5. CEFUROXIME [Suspect]
     Indication: CATARACT OPERATION
     Dosage: 125 MG
  6. HYALURONATE SODIUM [Suspect]
     Indication: CATARACT OPERATION
     Dosage: UNK
     Dates: start: 20080429, end: 20080429
  7. CYCLOPENTOLATE HCL [Suspect]
     Indication: CYCLOPLEGIA
     Dosage: UNK
     Route: 047
     Dates: start: 20080429, end: 20080429
  8. MINIMS PHENYLEPHRINE [Suspect]
     Indication: MYDRIASIS
     Dosage: UNK
     Route: 047
     Dates: start: 20080429, end: 20080429
  9. BALANCED SALT [Suspect]
     Indication: CATARACT OPERATION
     Dosage: UNK
     Dates: start: 20080429, end: 20080429
  10. CO-DYDRAMOL [Concomitant]
     Dosage: AS NECESSARY
     Route: 048
  11. FLUOXETINE HCL [Concomitant]
     Dosage: 1/1 DAYS
     Route: 048
  12. MAXITROL [Concomitant]
     Dosage: 3/1 DAYS
     Route: 047
     Dates: start: 20080429
  13. POVIDONE IODINE [Concomitant]
     Dosage: UNK
     Route: 061
     Dates: start: 20080429, end: 20080429
  14. WATER FOR INJECTION [Concomitant]
     Indication: MEDICATION DILUTION
     Dosage: UNK
     Dates: start: 20080429, end: 20080429
  15. HEALON [Concomitant]

REACTIONS (3)
  - BLINDNESS [None]
  - CORNEAL ABRASION [None]
  - INCORRECT ROUTE OF DRUG ADMINISTRATION [None]
